FAERS Safety Report 4930898-X (Version None)
Quarter: 2006Q1

REPORT INFORMATION
  Report Type: 
  Country: None (occurrence: None)
  Receive Date: 20060227
  Receipt Date: 20060223
  Transmission Date: 20060701
  Serious: Yes (Hospitalization)
  Sender: FDA-Public Use
  Company Number: S05-FRA-05745-01

PATIENT
  Age: 45 Year
  Sex: Male

DRUGS (6)
  1. AOTAL (ACAMPROSATE) [Suspect]
     Dosage: 1665 MG QD PO
     Route: 048
     Dates: start: 20051016, end: 20051107
  2. PREDNISONE [Concomitant]
  3. ALDACTONE [Concomitant]
  4. SPECIAFOLDINE (FOLIC ACID) [Concomitant]
  5. LASIX [Concomitant]
  6. OMEPRAZOLE [Concomitant]

REACTIONS (16)
  - BLOOD BILIRUBIN INCREASED [None]
  - BLOOD SODIUM DECREASED [None]
  - DERMATITIS BULLOUS [None]
  - HAEMANGIOMA [None]
  - HAEMOGLOBIN DECREASED [None]
  - HEPATOMEGALY [None]
  - JAUNDICE [None]
  - LEUKOCYTOSIS [None]
  - MEAN CELL VOLUME INCREASED [None]
  - NEUTROPHIL COUNT INCREASED [None]
  - PLATELET COUNT DECREASED [None]
  - PRURITUS GENERALISED [None]
  - PURPURA [None]
  - RASH MACULAR [None]
  - RECTAL HAEMORRHAGE [None]
  - TOXIC SKIN ERUPTION [None]
